FAERS Safety Report 21598877 (Version 2)
Quarter: 2022Q4

REPORT INFORMATION
  Report Type: Spontaneous
  Country: US (occurrence: US)
  Receive Date: 20221115
  Receipt Date: 20221122
  Transmission Date: 20230112
  Serious: No
  Sender: FDA-Public Use
  Company Number: US-SA-SAC20221111000324

PATIENT
  Age: 50 Year
  Sex: Female

DRUGS (8)
  1. AUBAGIO [Suspect]
     Active Substance: TERIFLUNOMIDE
     Indication: Multiple sclerosis
     Dosage: 14 MG , QD
     Route: 048
  2. NAPROXEN [Concomitant]
     Active Substance: NAPROXEN
  3. BACLOFEN [Concomitant]
     Active Substance: BACLOFEN
  4. WELLBUTRIN XL [Concomitant]
     Active Substance: BUPROPION HYDROCHLORIDE
  5. KESIMPTA [Concomitant]
     Active Substance: OFATUMUMAB
  6. VITAMIN D2 [Concomitant]
     Active Substance: ERGOCALCIFEROL
  7. PROTONEX [Concomitant]
  8. SUNOSI [Concomitant]
     Active Substance: SOLRIAMFETOL

REACTIONS (3)
  - Pain of skin [Unknown]
  - Alopecia [Unknown]
  - Paraesthesia [Unknown]
